FAERS Safety Report 5994154-3 (Version None)
Quarter: 2008Q4

REPORT INFORMATION
  Report Type: 
  Country: None (occurrence: None)
  Receive Date: 20081212
  Receipt Date: 20080904
  Transmission Date: 20090506
  Serious: Yes (Hospitalization)
  Sender: FDA-Public Use
  Company Number: US-ABBOTT-08P-163-0473739-00

PATIENT
  Sex: Male
  Weight: 104.42 kg

DRUGS (6)
  1. HUMIRA [Suspect]
     Indication: CROHN'S DISEASE
     Route: 058
     Dates: start: 20080820
  2. AZATHIOPRINE [Concomitant]
     Indication: IMMUNOSUPPRESSANT DRUG THERAPY
     Route: 048
     Dates: start: 20080730
  3. PREDNISONE TAB [Concomitant]
     Indication: CROHN'S DISEASE
     Route: 048
     Dates: start: 20070701
  4. MESALAMINE [Concomitant]
     Indication: CROHN'S DISEASE
     Route: 048
     Dates: start: 20080818
  5. PROBIOTICS [Concomitant]
     Indication: DRUG USE FOR UNKNOWN INDICATION
  6. ESOMEPRAZOLE MAGNESIUM [Concomitant]
     Indication: GASTRIC DISORDER
     Route: 048

REACTIONS (4)
  - BACTERIAL INFECTION [None]
  - BLOOD PRESSURE INCREASED [None]
  - HEART RATE INCREASED [None]
  - PANIC ATTACK [None]
